FAERS Safety Report 11937840 (Version 8)
Quarter: 2016Q2

REPORT INFORMATION
  Report Type: Report from Study
  Country: UA (occurrence: UA)
  Receive Date: 20160122
  Receipt Date: 20160622
  Transmission Date: 20160815
  Serious: Yes (Hospitalization)
  Sender: FDA-Public Use
  Company Number: UA-ROCHE-1697185

PATIENT
  Age: 42 Year
  Sex: Male
  Weight: 77 kg

DRUGS (29)
  1. KETOROLAC [Concomitant]
     Active Substance: KETOROLAC\KETOROLAC TROMETHAMINE
     Indication: CHEST PAIN
     Route: 065
     Dates: start: 20160103, end: 20160105
  2. KETOROLAC [Concomitant]
     Active Substance: KETOROLAC\KETOROLAC TROMETHAMINE
     Route: 065
     Dates: start: 20160114, end: 20160117
  3. PACLITAXEL. [Suspect]
     Active Substance: PACLITAXEL
     Indication: NON-SMALL CELL LUNG CANCER
     Route: 042
     Dates: start: 20151218
  4. DEXAMETHASONE. [Concomitant]
     Active Substance: DEXAMETHASONE
     Indication: DYSPNOEA
     Route: 065
     Dates: start: 20160107, end: 20160110
  5. PARACETAMOL [Concomitant]
     Active Substance: ACETAMINOPHEN
     Indication: PYREXIA
     Route: 065
     Dates: start: 20151221, end: 20160103
  6. MELOXICAM. [Concomitant]
     Active Substance: MELOXICAM
     Indication: MYALGIA
     Route: 065
     Dates: start: 20151222, end: 20151230
  7. METAMIZOLE SODIUM [Concomitant]
     Active Substance: METAMIZOLE SODIUM
     Indication: PYREXIA
     Route: 065
     Dates: start: 20160103, end: 20160105
  8. PYRIDOXINE [Concomitant]
     Active Substance: PYRIDOXINE
     Indication: PERIPHERAL SENSORY NEUROPATHY
     Route: 065
     Dates: start: 20160324, end: 20160506
  9. CYANOCOBALAMIN. [Concomitant]
     Active Substance: CYANOCOBALAMIN
     Indication: PERIPHERAL SENSORY NEUROPATHY
     Route: 065
     Dates: start: 20160324, end: 20160506
  10. THEOPHYLLINE [Concomitant]
     Active Substance: THEOPHYLLINE ANHYDROUS
     Indication: DYSPNOEA
     Route: 065
     Dates: start: 20160107, end: 20160110
  11. CORGLYCON [Concomitant]
     Dosage: INDICATION:- CARDIOVASCULAR DISORDERS PREVENTION
     Route: 065
     Dates: start: 20160114, end: 20160117
  12. CHLOROPHYLLIPT (UKRAINE) [Concomitant]
     Indication: PERIODONTAL DISEASE
     Route: 065
     Dates: start: 20160320
  13. THIAMINE. [Concomitant]
     Active Substance: THIAMINE
     Indication: PERIPHERAL SENSORY NEUROPATHY
     Route: 065
     Dates: start: 20160324, end: 20160506
  14. ATEZOLIZUMAB [Suspect]
     Active Substance: ATEZOLIZUMAB
     Indication: NON-SMALL CELL LUNG CANCER
     Route: 042
     Dates: start: 20151218
  15. ONDANSETRON [Concomitant]
     Active Substance: ONDANSETRON
     Dosage: INDICATION :- PRE-MEDICATION BEFORE CHEMOTHERAPY
     Route: 065
     Dates: start: 20151218, end: 20160414
  16. NALBUPHINE [Concomitant]
     Active Substance: NALBUPHINE
     Indication: CHEST PAIN
     Route: 065
     Dates: start: 20160103, end: 20160105
  17. AMBROXOL [Concomitant]
     Active Substance: AMBROXOL
     Indication: COUGH
     Route: 065
     Dates: start: 20160103, end: 20160118
  18. PARACETAMOL [Concomitant]
     Active Substance: ACETAMINOPHEN
     Indication: CHEST PAIN
     Route: 065
     Dates: start: 20160114, end: 20160117
  19. METAMIZOLE SODIUM [Concomitant]
     Active Substance: METAMIZOLE SODIUM
     Indication: CHEST PAIN
  20. BEVACIZUMAB [Suspect]
     Active Substance: BEVACIZUMAB
     Indication: NON-SMALL CELL LUNG CANCER
     Route: 042
     Dates: start: 20151218
  21. MELOXICAM. [Concomitant]
     Active Substance: MELOXICAM
     Indication: ARTHRALGIA
  22. CARBOPLATIN. [Suspect]
     Active Substance: CARBOPLATIN
     Indication: NON-SMALL CELL LUNG CANCER
     Route: 042
     Dates: start: 20151218
  23. DIPHENHYDRAMINUM [Concomitant]
     Indication: CHEST PAIN
     Route: 065
     Dates: start: 20151218, end: 20160414
  24. DIPHENHYDRAMINUM [Concomitant]
     Indication: PYREXIA
     Route: 065
     Dates: start: 20160103, end: 20160105
  25. RANITIDINE. [Concomitant]
     Active Substance: RANITIDINE
     Dosage: INDICATION:- PRE-MEDICATION BEFORE CHEMOTHERAPY
     Route: 065
     Dates: start: 20151218, end: 20160414
  26. LEVOFLOXACIN. [Concomitant]
     Active Substance: LEVOFLOXACIN
     Dosage: INICATION :-PULMONARY INFECTION PREVENTION
     Route: 065
     Dates: start: 20160106, end: 20160112
  27. INOSINE [Concomitant]
     Active Substance: INOSINE
     Dosage: INDICATION :-CARDIOVASCULAR DISORDERS PREVENTION
     Route: 065
     Dates: start: 20160107, end: 20160110
  28. ARGININE GLUTAMATE [Concomitant]
     Active Substance: ARGININE GLUTAMATE
     Dosage: INDICATION :- HEPATOBILIARY DISORDERS PREVENTION
     Route: 065
     Dates: start: 20160107, end: 20160110
  29. CHLOROPHYLLIPT (UKRAINE) [Concomitant]
     Indication: STOMATITIS

REACTIONS (1)
  - Anaemia [Recovered/Resolved]

NARRATIVE: CASE EVENT DATE: 20160105
